FAERS Safety Report 26034820 (Version 1)
Quarter: 2025Q4

REPORT INFORMATION
  Report Type: Spontaneous
  Country: US (occurrence: US)
  Receive Date: 20251112
  Receipt Date: 20251112
  Transmission Date: 20260117
  Serious: Yes (Hospitalization, Other)
  Sender: TEVA
  Company Number: US-TEVA-VS-3389258

PATIENT
  Age: 83 Year
  Sex: Male

DRUGS (3)
  1. MEMANTINE [Suspect]
     Active Substance: MEMANTINE
     Indication: Dementia
     Dosage: 5MG FOR THE FIRST WEEK AND THEN WAS INCREASED BY 5MG EVERY WEEK TO GET TO THE ?20MG DOSE
     Route: 048
     Dates: start: 20250925, end: 20251030
  2. MEMANTINE [Suspect]
     Active Substance: MEMANTINE
     Indication: Dementia
     Route: 048
     Dates: start: 2023, end: 2023
  3. ARICEPT [Concomitant]
     Active Substance: DONEPEZIL HYDROCHLORIDE
     Indication: Product used for unknown indication
     Route: 065

REACTIONS (13)
  - Prostate cancer [Unknown]
  - Fall [Unknown]
  - Victim of abuse [Unknown]
  - Irritability [Unknown]
  - Dizziness [Unknown]
  - Agitation [Unknown]
  - Incoherent [Unknown]
  - Brain fog [Unknown]
  - Aortic aneurysm [Unknown]
  - Cerebrovascular accident [Unknown]
  - Aggression [Unknown]
  - Contusion [Unknown]
  - Skin odour abnormal [Unknown]

NARRATIVE: CASE EVENT DATE: 20250101
